FAERS Safety Report 13066990 (Version 5)
Quarter: 2017Q4

REPORT INFORMATION
  Report Type: Report from Study
  Country: CA (occurrence: CA)
  Receive Date: 20161227
  Receipt Date: 20171012
  Transmission Date: 20180320
  Serious: Yes (Hospitalization, Other)
  Sender: FDA-Public Use
  Company Number: CA-GILEAD-2016-0250280

PATIENT
  Age: 59 Year
  Sex: Female

DRUGS (7)
  1. SPIRONOLACTONE. [Concomitant]
     Active Substance: SPIRONOLACTONE
     Dosage: 100 MG, UNK
     Dates: start: 20160812
  2. IBAVYR [Interacting]
     Active Substance: RIBAVIRIN
     Indication: CHRONIC HEPATITIS C
     Dosage: 400 MG, QD
     Route: 048
     Dates: start: 20161209, end: 20161215
  3. NADOLOL. [Interacting]
     Active Substance: NADOLOL
     Indication: PORTAL HYPERTENSION
     Dosage: 40 MG, QD
     Route: 048
     Dates: start: 20161031, end: 20161215
  4. SOFOSBUVIR W/VELPATASVIR [Interacting]
     Active Substance: SOFOSBUVIR\VELPATASVIR
     Dosage: 1 DF, QD
     Route: 048
     Dates: start: 20161219
  5. LASIX [Concomitant]
     Active Substance: FUROSEMIDE
     Dosage: 40 MG, UNK
     Dates: start: 20160812
  6. IBAVYR [Interacting]
     Active Substance: RIBAVIRIN
     Dosage: 400 MG, QD
     Route: 048
     Dates: start: 20161219
  7. SOFOSBUVIR W/VELPATASVIR [Suspect]
     Active Substance: SOFOSBUVIR\VELPATASVIR
     Indication: CHRONIC HEPATITIS C
     Dosage: 1 DF, QD
     Route: 048
     Dates: start: 20161209, end: 20161215

REACTIONS (13)
  - Sputum discoloured [Unknown]
  - Palpitations [Recovered/Resolved]
  - Dyspnoea exertional [Recovered/Resolved]
  - Dizziness [Recovered/Resolved]
  - Hyperhidrosis [Recovered/Resolved]
  - Vomiting [Not Recovered/Not Resolved]
  - Bradycardia [Recovered/Resolved]
  - Portal hypertension [Unknown]
  - Asthenia [Recovered/Resolved]
  - Cough [Unknown]
  - Drug interaction [Recovered/Resolved]
  - Presyncope [Recovered/Resolved]
  - Decreased appetite [Not Recovered/Not Resolved]

NARRATIVE: CASE EVENT DATE: 2016
